FAERS Safety Report 8603218-7 (Version None)
Quarter: 2012Q3

REPORT INFORMATION
  Report Type: 
  Country: None (occurrence: None)
  Receive Date: 20120817
  Receipt Date: 20120814
  Transmission Date: 20120928
  Serious: Yes (Other)
  Sender: FDA-Public Use
  Company Number: US-ELI_LILLY_AND_COMPANY-US201208004853

PATIENT
  Sex: Male

DRUGS (1)
  1. EFFIENT [Suspect]
     Dosage: UNK
     Dates: start: 20100201

REACTIONS (4)
  - CORONARY ARTERY BYPASS [None]
  - STENT PLACEMENT [None]
  - SCAR [None]
  - POST PROCEDURAL COMPLICATION [None]
